FAERS Safety Report 5981820-9 (Version None)
Quarter: 2008Q4

REPORT INFORMATION
  Report Type: 
  Country: None (occurrence: None)
  Receive Date: 20081205
  Receipt Date: 20081124
  Transmission Date: 20090506
  Serious: Yes (Hospitalization)
  Sender: FDA-Public Use
  Company Number: US-BAXTER-2008BH012636

PATIENT
  Sex: Female
  Weight: 55 kg

DRUGS (2)
  1. ARALAST [Suspect]
     Indication: ALPHA-1 ANTI-TRYPSIN DEFICIENCY
     Route: 065
  2. ARALAST [Suspect]
     Indication: CHRONIC OBSTRUCTIVE PULMONARY DISEASE
     Route: 065

REACTIONS (3)
  - ANXIETY [None]
  - HYPOAESTHESIA [None]
  - RESPIRATORY RATE INCREASED [None]
